FAERS Safety Report 10565018 (Version 1)
Quarter: 2014Q4

REPORT INFORMATION
  Report Type: Spontaneous
  Country: None (occurrence: None)
  Receive Date: 20141104
  Receipt Date: 20141104
  Transmission Date: 20150529
  Serious: Yes (Death)
  Sender: FDA-Public Use
  Company Number: None

PATIENT
  Age: 82 Year
  Sex: Male
  Weight: 104 kg

DRUGS (21)
  1. NOREPINEPHRINE [Suspect]
     Active Substance: NOREPINEPHRINE\NOREPINEPHRINE BITARTRATE
     Indication: HYPOTENSION
     Dates: start: 20141102, end: 20141102
  2. ETOMIDATE. [Concomitant]
     Active Substance: ETOMIDATE
  3. MAGNESIUM OXIDE. [Concomitant]
     Active Substance: MAGNESIUM OXIDE
  4. SODIUM BICARBONATE. [Concomitant]
     Active Substance: SODIUM BICARBONATE
  5. SUCCINYLCHOLINE [Concomitant]
     Active Substance: SUCCINYLCHOLINE
  6. DOPAMINE [Concomitant]
     Active Substance: DOPAMINE\DOPAMINE HYDROCHLORIDE
  7. FLAGYL [Concomitant]
     Active Substance: METRONIDAZOLE\METRONIDAZOLE HYDROCHLORIDE
  8. VERSED [Concomitant]
     Active Substance: MIDAZOLAM HYDROCHLORIDE
  9. NOREPINEPHRINE [Suspect]
     Active Substance: NOREPINEPHRINE\NOREPINEPHRINE BITARTRATE
     Indication: HYPOTENSION
     Dates: start: 20141102, end: 20141102
  10. CEFTRIAXONE. [Concomitant]
     Active Substance: CEFTRIAXONE
  11. ENOXAPARIN [Concomitant]
     Active Substance: ENOXAPARIN
  12. PROTONIX [Concomitant]
     Active Substance: PANTOPRAZOLE SODIUM
  13. POTASSIUM PHOSPHATE [Concomitant]
     Active Substance: POTASSIUM PHOSPHATE
  14. AZITHROMYCIN [Concomitant]
     Active Substance: AZITHROMYCIN ANHYDROUS
  15. POTASSIUM CHLORIDE. [Concomitant]
     Active Substance: POTASSIUM CHLORIDE
  16. XARELTO [Concomitant]
     Active Substance: RIVAROXABAN
  17. VASOPRESSIN. [Concomitant]
     Active Substance: VASOPRESSIN
  18. ALBUTEROL-IPRATROPIUM [Concomitant]
  19. CLINDAMYCIN [Concomitant]
     Active Substance: CLINDAMYCIN\CLINDAMYCIN PHOSPHATE
  20. LEVOTHYROXINE [Concomitant]
     Active Substance: LEVOTHYROXINE
  21. MORPHINE [Concomitant]
     Active Substance: MORPHINE

REACTIONS (3)
  - Tachycardia [None]
  - Product measured potency issue [None]
  - No therapeutic response [None]

NARRATIVE: CASE EVENT DATE: 20141102
